FAERS Safety Report 5907132-7 (Version None)
Quarter: 2008Q4

REPORT INFORMATION
  Report Type: 
  Country: None (occurrence: None)
  Receive Date: 20081003
  Receipt Date: 20080923
  Transmission Date: 20090506
  Serious: Yes (Other)
  Sender: FDA-Public Use
  Company Number: US-BAYER-200834252NA

PATIENT
  Age: 38 Year
  Sex: Male
  Weight: 82 kg

DRUGS (1)
  1. MAGNEVIST [Suspect]
     Indication: NUCLEAR MAGNETIC RESONANCE IMAGING BRAIN
     Dosage: TOTAL DAILY DOSE: 17 ML
     Route: 042
     Dates: start: 20080923, end: 20080923

REACTIONS (4)
  - CHEST PAIN [None]
  - SALIVARY HYPERSECRETION [None]
  - VOMITING [None]
  - WHEEZING [None]
